FAERS Safety Report 19411035 (Version 1)
Quarter: 2021Q2

REPORT INFORMATION
  Report Type: Report from Study
  Country: FR (occurrence: FR)
  Receive Date: 20210614
  Receipt Date: 20210614
  Transmission Date: 20210717
  Serious: Yes (Death, Other)
  Sender: FDA-Public Use
  Company Number: FR-SA-2021SA195476

PATIENT
  Sex: Male

DRUGS (3)
  1. CABAZITAXEL [Suspect]
     Active Substance: CABAZITAXEL
     Indication: HORMONE-REFRACTORY PROSTATE CANCER
     Dosage: 16 MG/M2, QCY (INFUSED OVER THE COURSE OF 1 H ON DAYS 1 AND 11 OF A 4?WEEK CYCLE)
  2. PREDNISONE. [Concomitant]
     Active Substance: PREDNISONE
     Dosage: 10 MG, QD
  3. G?CSF [Concomitant]
     Active Substance: GRANULOCYTE COLONY-STIMULATING FACTOR NOS
     Indication: PROPHYLAXIS
     Dosage: FOR 3 DAYS ON DAYS 3 TO 5 AND DAYS 17 TO 19

REACTIONS (4)
  - Anaemia [Fatal]
  - Incorrect product administration duration [Fatal]
  - Thrombocytopenia [Fatal]
  - Febrile neutropenia [Fatal]
